FAERS Safety Report 10899908 (Version 1)
Quarter: 2015Q1

REPORT INFORMATION
  Report Type: Spontaneous
  Country: BR (occurrence: BR)
  Receive Date: 20150310
  Receipt Date: 20150310
  Transmission Date: 20150721
  Serious: Yes (Other)
  Sender: FDA-Public Use
  Company Number: BR-ROCHE-1548063

PATIENT
  Age: 63 Year
  Sex: Male

DRUGS (7)
  1. LUCENTIS [Suspect]
     Active Substance: RANIBIZUMAB
     Dosage: 0.05MG, IN LEFT EYE, INTERVAL OF 7 WEEKS
     Route: 050
  2. LUCENTIS [Suspect]
     Active Substance: RANIBIZUMAB
     Dosage: IN LEFT EYE, INTERVAL OF 6 WEEKS
     Route: 050
  3. LUCENTIS [Suspect]
     Active Substance: RANIBIZUMAB
     Dosage: IN LEFT EYE, INTERVAL OF 9 WEEKS
     Route: 050
  4. LUCENTIS [Suspect]
     Active Substance: RANIBIZUMAB
     Indication: MACULAR OEDEMA
     Dosage: IN LEFT EYE, INTERVAL OF 5 WEEKS
     Route: 050
  5. LUCENTIS [Suspect]
     Active Substance: RANIBIZUMAB
     Dosage: IN BOTH EYES, INTERVAL OF 8 WEEKS
     Route: 050
  6. LUCENTIS [Suspect]
     Active Substance: RANIBIZUMAB
     Indication: DIABETIC RETINOPATHY
     Dosage: IN RIGHT EYE
     Route: 050
  7. LUCENTIS [Suspect]
     Active Substance: RANIBIZUMAB
     Dosage: IN LEFT EYE, INTERVAL OF 8 WEEKS
     Route: 050

REACTIONS (6)
  - Cataract nuclear [Unknown]
  - Off label use [Unknown]
  - Retinal disorder [Unknown]
  - Macular cyst [Unknown]
  - Retinal cyst [Unknown]
  - Retinal exudates [Unknown]
